FAERS Safety Report 5011199-0 (Version None)
Quarter: 2006Q2

REPORT INFORMATION
  Report Type: 
  Country: None (occurrence: None)
  Receive Date: 20060522
  Receipt Date: 20060522
  Transmission Date: 20061013
  Serious: Yes (Death)
  Sender: FDA-Public Use
  Company Number: None

PATIENT
  Age: 78 Year
  Sex: Female

DRUGS (4)
  1. INTEGRILIN [Suspect]
     Indication: ACUTE MYOCARDIAL INFARCTION
     Dates: start: 20060215
  2. HEPARIN [Suspect]
  3. ASPIRIN [Suspect]
  4. PLAVIX [Suspect]

REACTIONS (12)
  - BLOOD LACTIC ACID INCREASED [None]
  - BRADYCARDIA [None]
  - GASTROINTESTINAL HAEMORRHAGE [None]
  - HAEMATEMESIS [None]
  - HEART RATE DECREASED [None]
  - HYPOTENSION [None]
  - HYPOXIA [None]
  - INTESTINAL ISCHAEMIA [None]
  - OXYGEN SATURATION DECREASED [None]
  - POST PROCEDURAL HAEMORRHAGE [None]
  - URINE OUTPUT DECREASED [None]
  - VASCULAR PSEUDOANEURYSM [None]
